FAERS Safety Report 9191999 (Version 1)
Quarter: 2013Q1

REPORT INFORMATION
  Report Type: Spontaneous
  Country: US (occurrence: None)
  Receive Date: 20130326
  Receipt Date: 20130326
  Transmission Date: 20140127
  Serious: Yes (Death)
  Sender: FDA-Public Use
  Company Number: None

PATIENT
  Age: 55 Year
  Sex: Male

DRUGS (1)
  1. VOTRIENT 200MG GLAXO SMITH KLINE [Suspect]
     Indication: RENAL CANCER
     Route: 048
     Dates: start: 20121231, end: 20130207

REACTIONS (2)
  - Drug ineffective [None]
  - Disease progression [None]
